FAERS Safety Report 4302442-1 (Version None)
Quarter: 2004Q1

REPORT INFORMATION
  Report Type: 
  Country: None (occurrence: None)
  Receive Date: 20040224
  Receipt Date: 20040217
  Transmission Date: 20041129
  Serious: Yes (Death, Hospitalization)
  Sender: FDA-Public Use
  Company Number: 200411218US

PATIENT
  Age: 70 Year
  Sex: Male

DRUGS (2)
  1. TAXOTERE [Suspect]
     Indication: PROSTATE CANCER
     Dosage: DOSE: UNK
  2. DOXIL [Suspect]
     Indication: PROSTATE CANCER
     Dosage: DOSE: UNK

REACTIONS (12)
  - ATRIAL FIBRILLATION [None]
  - COUGH [None]
  - GENERAL PHYSICAL HEALTH DETERIORATION [None]
  - HYPOTENSION [None]
  - HYPOXIA [None]
  - LOSS OF CONSCIOUSNESS [None]
  - MENTAL STATUS CHANGES [None]
  - PERITONEAL HAEMORRHAGE [None]
  - PNEUMONIA [None]
  - PNEUMONITIS CHEMICAL [None]
  - PYREXIA [None]
  - TACHYPNOEA [None]
